FAERS Safety Report 13818776 (Version 1)
Quarter: 2017Q3

REPORT INFORMATION
  Report Type: Report from Study
  Country: US (occurrence: US)
  Receive Date: 20170731
  Receipt Date: 20170731
  Transmission Date: 20171127
  Serious: No
  Sender: FDA-Public Use
  Company Number: US-EXELIXIS-CABO-17008219

PATIENT
  Sex: Male

DRUGS (10)
  1. AMLODIPINE [Concomitant]
     Active Substance: AMLODIPINE BESYLATE
  2. BABY ASPIRIN [Concomitant]
     Active Substance: ASPIRIN
  3. VITAMIN B12 [Concomitant]
     Active Substance: CYANOCOBALAMIN
  4. ATIVAN [Concomitant]
     Active Substance: LORAZEPAM
  5. CABOMETYX [Suspect]
     Active Substance: CABOZANTINIB S-MALATE
     Indication: RENAL CANCER
     Dosage: 60 MG, QD
     Route: 048
  6. LOVENOX [Concomitant]
     Active Substance: ENOXAPARIN SODIUM
  7. FLOMAX [Concomitant]
     Active Substance: TAMSULOSIN HYDROCHLORIDE
  8. VITAMIN C [Concomitant]
     Active Substance: ASCORBIC ACID
  9. MACROBID [Concomitant]
     Active Substance: NITROFURANTOIN\NITROFURANTOIN MONOHYDRATE
  10. FLUOCINOLONE ACETONIDE. [Concomitant]
     Active Substance: FLUOCINOLONE ACETONIDE

REACTIONS (7)
  - Diarrhoea [Not Recovered/Not Resolved]
  - Rash [Unknown]
  - Eczema [Recovered/Resolved]
  - Decreased appetite [Unknown]
  - Skin cancer [Unknown]
  - Fatigue [Unknown]
  - Constipation [Unknown]
